FAERS Safety Report 19439274 (Version 1)
Quarter: 2021Q2

REPORT INFORMATION
  Report Type: Report from Study
  Country: GB (occurrence: GB)
  Receive Date: 20210618
  Receipt Date: 20210618
  Transmission Date: 20210717
  Serious: Yes (Hospitalization, Other)
  Sender: FDA-Public Use
  Company Number: GB-TAKEDA-SPV1-2008-02412

PATIENT
  Age: 7 Year
  Sex: Male
  Weight: 24 kg

DRUGS (17)
  1. PREDNISOLONE. [Concomitant]
     Active Substance: PREDNISOLONE
     Dosage: 25 MG, 1X/WEEK
     Dates: start: 20071016, end: 20080115
  2. EMLA [Concomitant]
     Active Substance: LIDOCAINE\PRILOCAINE
     Dosage: 2.5 MG, AS REQ^D
     Dates: start: 20070505
  3. LOPERAMIDE [Concomitant]
     Active Substance: LOPERAMIDE
     Dosage: 6 MG, AS REQ^D
     Dates: start: 2003
  4. IDURSULFASE [Suspect]
     Active Substance: IDURSULFASE
     Dosage: 0.48 MG/KG, 1X/WEEK
     Route: 065
     Dates: start: 20080408, end: 20090109
  5. PREDNISOLONE. [Concomitant]
     Active Substance: PREDNISOLONE
     Indication: PREMEDICATION
     Dosage: 5 MG, 1X/WEEK
     Dates: start: 20080527, end: 20080826
  6. ALIMEMAZINE [Concomitant]
     Active Substance: TRIMEPRAZINE
     Indication: SLEEP DISORDER
     Dosage: 6 MG, UNK
     Dates: start: 200607
  7. IDURSULFASE [Suspect]
     Active Substance: IDURSULFASE
     Indication: MUCOPOLYSACCHARIDOSIS II
     Dosage: 0.48 MG/KG, 1X/WEEK
     Route: 041
     Dates: start: 20070508
  8. MELATONIN [Concomitant]
     Active Substance: MELATONIN
     Indication: SLEEP DISORDER
     Dosage: 10 MG, 1X/DAY:QD
     Dates: start: 2006
  9. HYDROXYZINE [Concomitant]
     Active Substance: HYDROXYZINE HYDROCHLORIDE
     Indication: PREMEDICATION
     Dosage: 20 MG, 1X/WEEK
     Dates: start: 20070529
  10. PREDNISOLONE. [Concomitant]
     Active Substance: PREDNISOLONE
     Dosage: 30 MG, 1X/WEEK
     Dates: start: 20070605, end: 20070710
  11. PREDNISOLONE. [Concomitant]
     Active Substance: PREDNISOLONE
     Dosage: 10 MG, 1X/WEEK
     Dates: start: 20070924, end: 20070925
  12. HEPARIN [Concomitant]
     Active Substance: HEPARIN SODIUM
     Dosage: 5 ML, 1X/WEEK
     Dates: start: 20070621
  13. CHLORPHENIRAMINE                   /00072501/ [Concomitant]
     Active Substance: CHLORPHENIRAMINE
     Indication: PREMEDICATION
     Dosage: 2 MG, AS REQ^D
     Dates: start: 20070605
  14. PREDNISOLONE. [Concomitant]
     Active Substance: PREDNISOLONE
     Dosage: 10 MG, 1X/WEEK
     Dates: start: 20080429, end: 20080520
  15. PREDNISOLONE. [Concomitant]
     Active Substance: PREDNISOLONE
     Dosage: 20 MG, 1X/WEEK
     Dates: start: 20080122, end: 20080422
  16. RANITIDINE. [Concomitant]
     Active Substance: RANITIDINE
     Indication: PREMEDICATION
     Dosage: 75 MG, 1X/WEEK
     Dates: start: 20070529
  17. PARACETAMOL [Concomitant]
     Active Substance: ACETAMINOPHEN
     Indication: PREMEDICATION
     Dosage: 250 MG, 1X/WEEK
     Dates: start: 20070105

REACTIONS (14)
  - Unresponsive to stimuli [Recovered/Resolved]
  - Poor venous access [Recovered/Resolved with Sequelae]
  - Rash macular [Recovered/Resolved with Sequelae]
  - Vomiting [Recovered/Resolved]
  - Tachycardia [Recovered/Resolved]
  - Catheter site swelling [Recovered/Resolved with Sequelae]
  - Increased bronchial secretion [Recovered/Resolved]
  - Secretion discharge [Recovered/Resolved]
  - Chills [Recovered/Resolved with Sequelae]
  - Livedo reticularis [Recovered/Resolved with Sequelae]
  - Malaise [Recovered/Resolved with Sequelae]
  - Anxiety [Recovered/Resolved with Sequelae]
  - Pyrexia [Recovered/Resolved with Sequelae]
  - Flushing [Recovered/Resolved with Sequelae]

NARRATIVE: CASE EVENT DATE: 20070529
